FAERS Safety Report 4658855-1 (Version None)
Quarter: 2005Q2

REPORT INFORMATION
  Report Type: 
  Country: None (occurrence: None)
  Receive Date: 20050511
  Receipt Date: 20050316
  Transmission Date: 20051028
  Serious: Yes (Other)
  Sender: FDA-Public Use
  Company Number: PHEH2005US03232

PATIENT
  Age: 3 Year
  Sex: Male

DRUGS (3)
  1. ELIDEL [Suspect]
     Indication: ECZEMA
     Dosage: UNK, QHS
     Route: 061
     Dates: start: 20020602, end: 20050314
  2. PROTOPIC [Suspect]
     Route: 061
     Dates: start: 20040422
  3. MENTAX [Concomitant]

REACTIONS (2)
  - MALIGNANT MELANOMA IN SITU [None]
  - PIGMENTED NAEVUS [None]
